FAERS Safety Report 5328088-4 (Version None)
Quarter: 2007Q2

REPORT INFORMATION
  Report Type: 
  Country: None (occurrence: None)
  Receive Date: 20070514
  Receipt Date: 20070427
  Transmission Date: 20071010
  Serious: Yes (Other)
  Sender: FDA-Public Use
  Company Number: 8023138

PATIENT
  Age: 25 Year
  Sex: Female

DRUGS (6)
  1. KEPPRA [Suspect]
     Indication: CONVULSION
     Dosage: 3000 MG/D
     Dates: start: 20051128
  2. KEPPRA [Suspect]
     Indication: TRAUMATIC BRAIN INJURY
     Dosage: 3000 MG/D
     Dates: start: 20051128
  3. TRILEPTAL [Concomitant]
  4. TOPAMAX [Concomitant]
  5. PRENATAL VITAMINS [Concomitant]
  6. FOLIC ACID [Concomitant]

REACTIONS (5)
  - ABORTION SPONTANEOUS [None]
  - CONVULSION [None]
  - DRUG EXPOSURE BEFORE PREGNANCY [None]
  - DRUG EXPOSURE DURING PREGNANCY [None]
  - PREGNANCY [None]
